FAERS Safety Report 5537023-5 (Version None)
Quarter: 2007Q4

REPORT INFORMATION
  Report Type: 
  Country: None (occurrence: None)
  Receive Date: 20071207
  Receipt Date: 20060201
  Transmission Date: 20080405
  Serious: Yes (Other)
  Sender: FDA-Public Use
  Company Number: IT-JNJFOC-20071005792

PATIENT
  Age: 48 Year
  Sex: Female
  Weight: 107 kg

DRUGS (3)
  1. HALOPERIDOL [Suspect]
     Indication: BIPOLAR DISORDER
     Route: 050
  2. ORAL HYPOGLYCAEMICS [Concomitant]
     Indication: DIABETES MELLITUS
     Route: 065
  3. LIPID LOWERING THERAPY [Concomitant]
     Indication: HYPERLIPIDAEMIA
     Route: 065

REACTIONS (1)
  - WEIGHT INCREASED [None]
